FAERS Safety Report 8606071-0 (Version None)
Quarter: 2012Q3

REPORT INFORMATION
  Report Type: 
  Country: None (occurrence: None)
  Receive Date: 20120820
  Receipt Date: 20120807
  Transmission Date: 20120928
  Serious: Yes (Hospitalization, Other)
  Sender: FDA-Public Use
  Company Number: JP-JNJFOC-20120808837

PATIENT
  Age: 3 Year
  Sex: Male

DRUGS (4)
  1. ZYRTEC [Suspect]
     Indication: BRONCHITIS
     Route: 048
     Dates: start: 20120802, end: 20120803
  2. ASVERIN [Concomitant]
     Indication: PRODUCT USED FOR UNKNOWN INDICATION
     Route: 048
  3. ZYRTEC [Suspect]
     Route: 048
  4. TULOBUTEROL [Concomitant]
     Indication: PRODUCT USED FOR UNKNOWN INDICATION
     Route: 061

REACTIONS (3)
  - BRONCHITIS [None]
  - OFF LABEL USE [None]
  - URINARY RETENTION [None]
